FAERS Safety Report 17455610 (Version 1)
Quarter: 2020Q1

REPORT INFORMATION
  Report Type: Spontaneous
  Country: IN (occurrence: IN)
  Receive Date: 20200225
  Receipt Date: 20200225
  Transmission Date: 20200409
  Serious: No
  Sender: FDA-Public Use
  Company Number: None

PATIENT
  Age: 62 Year
  Sex: Female
  Weight: 65 kg

DRUGS (7)
  1. ZOLERTRONIC ACID INJ [Concomitant]
  2. MEAXON PLUS INJ [Concomitant]
  3. INJ.ZOLERDRONIC ACID, 4MG SLOW IV [Suspect]
     Active Substance: ZOLEDRONIC ACID
     Indication: BONE PAIN
  4. ARACHITOL INJ [Concomitant]
  5. SHELCAL TAB [Concomitant]
  6. GABAMAX TAB [Concomitant]
  7. ULTRACET [Concomitant]
     Active Substance: ACETAMINOPHEN\TRAMADOL HYDROCHLORIDE

REACTIONS (4)
  - Dizziness [None]
  - Ocular hyperaemia [None]
  - Malaise [None]
  - Lacrimation increased [None]

NARRATIVE: CASE EVENT DATE: 20200224
